FAERS Safety Report 19177983 (Version 1)
Quarter: 2021Q2

REPORT INFORMATION
  Report Type: Spontaneous
  Country: US (occurrence: US)
  Receive Date: 20210426
  Receipt Date: 20210426
  Transmission Date: 20210717
  Serious: No
  Sender: FDA-Public Use
  Company Number: US-JNJFOC-20210413269

PATIENT
  Sex: Male

DRUGS (2)
  1. TYLENOL 8HR [Suspect]
     Active Substance: ACETAMINOPHEN
     Indication: PAIN
     Route: 048
     Dates: start: 20210403
  2. TYLENOL EXTRA STRENGTH [Suspect]
     Active Substance: ACETAMINOPHEN
     Indication: HEADACHE
     Route: 065

REACTIONS (1)
  - Incorrect dose administered [Unknown]
